FAERS Safety Report 6942270-1 (Version None)
Quarter: 2010Q3

REPORT INFORMATION
  Report Type: 
  Country: None (occurrence: None)
  Receive Date: 20100826
  Receipt Date: 20100816
  Transmission Date: 20110219
  Serious: Yes (Life-Threatening, Hospitalization)
  Sender: FDA-Public Use
  Company Number: US-SANOFI-AVENTIS-2010SA049045

PATIENT
  Age: 74 Year
  Sex: Female

DRUGS (8)
  1. PLAVIX [Suspect]
     Indication: STENT PLACEMENT
     Route: 048
     Dates: start: 20100706, end: 20100803
  2. PLAVIX [Suspect]
     Indication: CORONARY ARTERY OCCLUSION
     Route: 048
     Dates: start: 20100706, end: 20100803
  3. PLAVIX [Suspect]
     Route: 048
     Dates: start: 20100806, end: 20100806
  4. PLAVIX [Suspect]
     Route: 048
     Dates: start: 20100806, end: 20100806
  5. PLAVIX [Suspect]
     Route: 048
     Dates: start: 20100801
  6. PLAVIX [Suspect]
     Route: 048
     Dates: start: 20100801
  7. ASPIRIN [Suspect]
     Route: 065
     Dates: end: 20100801
  8. ALL OTHER THERAPEUTIC PRODUCTS [Concomitant]

REACTIONS (8)
  - ANAEMIA [None]
  - ARTERIAL RUPTURE [None]
  - CONFUSIONAL STATE [None]
  - GASTRIC ULCER [None]
  - GASTRIC ULCER HAEMORRHAGE [None]
  - MEDICATION ERROR [None]
  - OFF LABEL USE [None]
  - RESPIRATORY FAILURE [None]
